FAERS Safety Report 5961880-1 (Version None)
Quarter: 2008Q4

REPORT INFORMATION
  Report Type: 
  Country: None (occurrence: None)
  Receive Date: 20081121
  Receipt Date: 20080911
  Transmission Date: 20090506
  Serious: Yes (Hospitalization)
  Sender: FDA-Public Use
  Company Number: US-BRISTOL-MYERS SQUIBB COMPANY-14312235

PATIENT
  Age: 77 Year
  Sex: Female

DRUGS (2)
  1. AVALIDE [Suspect]
     Indication: HYPERTENSION
     Dosage: 1 DOSAGE FORM = 150/12.5 UNITS NOT SPECIFIED
     Route: 048
  2. CADUET [Concomitant]

REACTIONS (1)
  - HYPOKALAEMIA [None]
